FAERS Safety Report 8507270-9 (Version None)
Quarter: 2012Q3

REPORT INFORMATION
  Report Type: 
  Country: None (occurrence: None)
  Receive Date: 20120712
  Receipt Date: 20120628
  Transmission Date: 20120928
  Serious: Yes (Death, Other)
  Sender: FDA-Public Use
  Company Number: JP-ROCHE-1047613

PATIENT
  Sex: Female
  Weight: 38 kg

DRUGS (7)
  1. PREDNISOLONE [Concomitant]
     Route: 048
     Dates: start: 20110906
  2. LANSOPRAZOLE [Concomitant]
     Indication: PROPHYLAXIS
     Route: 048
  3. PREDNISOLONE [Concomitant]
     Indication: RHEUMATOID ARTHRITIS
     Route: 048
     Dates: end: 20110808
  4. PREDNISOLONE [Concomitant]
     Route: 048
     Dates: start: 20110809, end: 20110905
  5. ACTEMRA [Suspect]
     Indication: RHEUMATOID ARTHRITIS
     Route: 041
     Dates: start: 20110708, end: 20111226
  6. AMOBAN [Concomitant]
     Indication: INSOMNIA
     Route: 048
  7. VOLTAREN [Concomitant]
     Indication: RHEUMATOID ARTHRITIS
     Route: 048
     Dates: end: 20110808

REACTIONS (6)
  - RENAL IMPAIRMENT [None]
  - HEPATIC FAILURE [None]
  - HODGKIN'S DISEASE [None]
  - VOMITING [None]
  - MULTI-ORGAN FAILURE [None]
  - NAUSEA [None]
